FAERS Safety Report 23045633 (Version 3)
Quarter: 2023Q4

REPORT INFORMATION
  Report Type: Report from Study
  Country: US (occurrence: US)
  Receive Date: 20231009
  Receipt Date: 20231214
  Transmission Date: 20240110
  Serious: No
  Sender: FDA-Public Use
  Company Number: US-BIOVITRUM-2023-US-015319

PATIENT
  Age: 41 Year
  Sex: Male

DRUGS (2)
  1. DOPTELET [Suspect]
     Active Substance: AVATROMBOPAG MALEATE
     Indication: Immune thrombocytopenia
     Dosage: 20MG, DAILY
     Route: 048
     Dates: start: 20230927
  2. DOPTELET [Suspect]
     Active Substance: AVATROMBOPAG MALEATE
     Dosage: 20 MG EVERY OTHER DAY
     Route: 048
     Dates: start: 20231030

REACTIONS (24)
  - Gingival bleeding [Unknown]
  - Stress [Unknown]
  - Platelet count decreased [Unknown]
  - Feeling abnormal [Unknown]
  - Anxiety [Unknown]
  - Depression [Unknown]
  - Product dose omission issue [Unknown]
  - Platelet count abnormal [Unknown]
  - Heart rate increased [Unknown]
  - Blood pressure fluctuation [Unknown]
  - Tremor [Unknown]
  - Fatigue [Unknown]
  - Skin striae [Unknown]
  - Headache [Unknown]
  - Emotional disorder [Unknown]
  - Platelet count increased [Unknown]
  - Skin discolouration [Unknown]
  - Dry skin [Unknown]
  - Sunburn [Unknown]
  - Intentional dose omission [Unknown]
  - Acne [Unknown]
  - Paranasal sinus discomfort [Unknown]
  - Mouth haemorrhage [Unknown]
  - Laboratory test abnormal [Unknown]
